FAERS Safety Report 5150413-8 (Version None)
Quarter: 2006Q4

REPORT INFORMATION
  Report Type: 
  Country: None (occurrence: None)
  Receive Date: 20061114
  Receipt Date: 20060518
  Transmission Date: 20070319
  Serious: Yes (Death)
  Sender: FDA-Public Use
  Company Number: JP-ROCHE-448940

PATIENT
  Age: 84 Year
  Sex: Female
  Weight: 40 kg

DRUGS (5)
  1. TAMIFLU [Suspect]
     Route: 048
     Dates: start: 20060120, end: 20060124
  2. DIOVAN [Concomitant]
     Dosage: NOTE: AFTER THE BREAKFAST
     Route: 048
     Dates: start: 20000615, end: 20060209
  3. KEIMA-KAKUHAN-TO [Concomitant]
     Route: 048
     Dates: start: 20060120, end: 20060123
  4. 1 CONCOMITANT UNSPECIFIED DRUG [Concomitant]
     Dosage: DRUG NAME: KEISHI-TO
     Route: 048
     Dates: start: 20060120, end: 20060123
  5. MAO-TO [Concomitant]
     Route: 048
     Dates: start: 20060120, end: 20060123

REACTIONS (4)
  - APLASTIC ANAEMIA [None]
  - GENERAL PHYSICAL HEALTH DETERIORATION [None]
  - INFECTION IN AN IMMUNOCOMPROMISED HOST [None]
  - SEPSIS [None]
